FAERS Safety Report 5673706-4 (Version None)
Quarter: 2008Q1

REPORT INFORMATION
  Report Type: 
  Country: None (occurrence: None)
  Receive Date: 20080319
  Receipt Date: 20080307
  Transmission Date: 20080703
  Serious: Yes (Death)
  Sender: FDA-Public Use
  Company Number: FR-PFIZER INC-2008006803

PATIENT
  Sex: Male
  Weight: 76 kg

DRUGS (1)
  1. CHAMPIX [Suspect]
     Indication: SMOKING CESSATION THERAPY
     Route: 048
     Dates: start: 20070510, end: 20070615

REACTIONS (5)
  - CARDIAC ARREST [None]
  - DISCOMFORT [None]
  - FEELING ABNORMAL [None]
  - NAUSEA [None]
  - RESPIRATORY DISORDER [None]
